FAERS Safety Report 19451043 (Version 1)
Quarter: 2021Q2

REPORT INFORMATION
  Report Type: Spontaneous
  Country: FR (occurrence: FR)
  Receive Date: 20210623
  Receipt Date: 20210623
  Transmission Date: 20210717
  Serious: Yes (Other)
  Sender: FDA-Public Use
  Company Number: FR-SA-2021SA198382

PATIENT
  Age: 60 Year
  Sex: Male
  Weight: 85 kg

DRUGS (11)
  1. EUPRESSYL [URAPIDIL] [Concomitant]
     Active Substance: URAPIDIL
  2. ROACTEMRA [Suspect]
     Active Substance: TOCILIZUMAB
     Indication: RHEUMATOID ARTHRITIS
     Route: 041
  3. DOLIPRANE [Concomitant]
     Active Substance: ACETAMINOPHEN
  4. BISOPROLOL /HCTZ [Concomitant]
     Active Substance: BISOPROLOL FUMARATE\HYDROCHLOROTHIAZIDE
  5. KARDEGIC [Concomitant]
     Active Substance: ASPIRIN DL-LYSINE
  6. ARAVA [Suspect]
     Active Substance: LEFLUNOMIDE
     Indication: RHEUMATOID ARTHRITIS
     Dosage: 10 MG, QD
     Route: 048
     Dates: start: 201912
  7. CORTANCYL [Concomitant]
     Active Substance: PREDNISONE
  8. ATORVASTATIN [Concomitant]
     Active Substance: ATORVASTATIN
  9. GAVISCON [SODIUM ALGINATE;SODIUM BICARBONATE] [Concomitant]
     Active Substance: SODIUM ALGINATE\SODIUM BICARBONATE
  10. ESIDREX [Concomitant]
     Active Substance: HYDROCHLOROTHIAZIDE
  11. ZANEXTRA [Concomitant]
     Active Substance: ENALAPRIL MALEATE\LERCANIDIPINE HYDROCHLORIDE

REACTIONS (1)
  - Polycythaemia [Recovering/Resolving]

NARRATIVE: CASE EVENT DATE: 202007
